FAERS Safety Report 17468823 (Version 4)
Quarter: 2020Q3

REPORT INFORMATION
  Report Type: Spontaneous
  Country: US (occurrence: US)
  Receive Date: 20200227
  Receipt Date: 20200703
  Transmission Date: 20201102
  Serious: Yes (Hospitalization, Other)
  Sender: FDA-Public Use
  Company Number: US-PFIZER INC-2020082459

PATIENT
  Age: 54 Year
  Sex: Female
  Weight: 68.15 kg

DRUGS (13)
  1. XANAX [Suspect]
     Active Substance: ALPRAZOLAM
     Dosage: 1 MG, 3X/DAY
     Dates: start: 199707
  2. ALPRAZOLAM. [Suspect]
     Active Substance: ALPRAZOLAM
     Indication: PANIC ATTACK
     Dosage: 1 MG, 4X/DAY
  3. XANAX [Suspect]
     Active Substance: ALPRAZOLAM
     Dosage: 1 MG, 5X A DAY
     Dates: start: 199707
  4. XANAX [Suspect]
     Active Substance: ALPRAZOLAM
     Dosage: 1 MG, 5X PER DAY
  5. ALPRAZOLAM. [Suspect]
     Active Substance: ALPRAZOLAM
     Indication: ANXIETY
     Dosage: 0.5 DF, 1/2 TABLET 5 TIMES A DAY
     Route: 048
  6. PROZAC [Concomitant]
     Active Substance: FLUOXETINE HYDROCHLORIDE
     Dosage: UNK
     Dates: start: 1997, end: 2001
  7. XANAX [Suspect]
     Active Substance: ALPRAZOLAM
     Indication: PANIC ATTACK
     Dosage: 1 MG, 4X/DAY
     Dates: start: 1997
  8. BUPROPION. [Concomitant]
     Active Substance: BUPROPION
     Dosage: UNK
     Dates: start: 1997
  9. LITHIUM. [Concomitant]
     Active Substance: LITHIUM
     Dosage: UNK, (TOOK FOR 1 MONTH, STOPPED)
     Dates: start: 1998
  10. BUPROPION. [Concomitant]
     Active Substance: BUPROPION
     Dosage: UNK
     Dates: start: 1998
  11. XANAX [Suspect]
     Active Substance: ALPRAZOLAM
     Indication: ANXIETY
     Dosage: 1 MG, 5X PER DAY
     Dates: start: 1997
  12. ALPRAZOLAM. [Suspect]
     Active Substance: ALPRAZOLAM
     Dosage: 1 MG, 3X/DAY
     Route: 048
  13. VALIUM [Concomitant]
     Active Substance: DIAZEPAM
     Dosage: UNK, (TOOK FOR 1 MONTH + STOPPED)
     Dates: start: 1998

REACTIONS (28)
  - Lower respiratory tract infection [Not Recovered/Not Resolved]
  - Fall [Unknown]
  - Back pain [Unknown]
  - Fear [Not Recovered/Not Resolved]
  - Loss of personal independence in daily activities [Unknown]
  - Nasopharyngitis [Not Recovered/Not Resolved]
  - Suicidal ideation [Unknown]
  - Dizziness [Unknown]
  - Tooth fracture [Unknown]
  - Chills [Not Recovered/Not Resolved]
  - Lung neoplasm malignant [Not Recovered/Not Resolved]
  - Nausea [Not Recovered/Not Resolved]
  - Abdominal pain upper [Unknown]
  - Night sweats [Unknown]
  - Illness [Not Recovered/Not Resolved]
  - Tremor [Not Recovered/Not Resolved]
  - Confusional state [Unknown]
  - Balance disorder [Unknown]
  - Withdrawal syndrome [Unknown]
  - Cough [Not Recovered/Not Resolved]
  - Weight increased [Unknown]
  - Rhinorrhoea [Not Recovered/Not Resolved]
  - Drug dependence [Not Recovered/Not Resolved]
  - Chest pain [Not Recovered/Not Resolved]
  - Pain in extremity [Unknown]
  - Feeling cold [Not Recovered/Not Resolved]
  - Dyspnoea [Not Recovered/Not Resolved]
  - Impatience [Unknown]

NARRATIVE: CASE EVENT DATE: 1997
